FAERS Safety Report 19981839 (Version 2)
Quarter: 2021Q4

REPORT INFORMATION
  Report Type: Report from Study
  Country: BG (occurrence: BG)
  Receive Date: 20211022
  Receipt Date: 20211108
  Transmission Date: 20220303
  Serious: Yes (Hospitalization, Other)
  Sender: FDA-Public Use
  Company Number: BG-ABBVIE-21K-022-4130290-00

PATIENT
  Age: 23 Year
  Sex: Female

DRUGS (1)
  1. HUMIRA [Suspect]
     Active Substance: ADALIMUMAB
     Indication: Psoriasis
     Route: 058
     Dates: start: 201907

REACTIONS (4)
  - Endometriosis [Unknown]
  - Endometrial disorder [Unknown]
  - Laparoscopic surgery [Unknown]
  - Ovarian cyst [Unknown]
